FAERS Safety Report 19692989 (Version 1)
Quarter: 2021Q3

REPORT INFORMATION
  Report Type: Report from Study
  Country: None (occurrence: US)
  Receive Date: 20210813
  Receipt Date: 20210813
  Transmission Date: 20211014
  Serious: Yes (Hospitalization, Other)
  Sender: FDA-Public Use
  Company Number: US-ABBVIE-21K-163-4032019-00

PATIENT
  Age: 9 Year
  Sex: Female

DRUGS (16)
  1. MEPHYTON [Concomitant]
     Active Substance: PHYTONADIONE
     Indication: PRODUCT USED FOR UNKNOWN INDICATION
  2. PHYTONADIONE. [Concomitant]
     Active Substance: PHYTONADIONE
     Indication: PRODUCT USED FOR UNKNOWN INDICATION
  3. LEVOFLOXACIN. [Concomitant]
     Active Substance: LEVOFLOXACIN
     Indication: PRODUCT USED FOR UNKNOWN INDICATION
     Route: 048
     Dates: start: 20210727
  4. CLARITHROMYCIN. [Concomitant]
     Active Substance: CLARITHROMYCIN
     Indication: PRODUCT USED FOR UNKNOWN INDICATION
  5. LEVAQUIN [Concomitant]
     Active Substance: LEVOFLOXACIN
     Indication: PRODUCT USED FOR UNKNOWN INDICATION
  6. BECLOMETHASONE DIPROPIONATE [BECLOMETASONE DIPROPIONATE] [Concomitant]
     Active Substance: BECLOMETHASONE DIPROPIONATE
     Indication: PRODUCT USED FOR UNKNOWN INDICATION
  7. PANTOPRAZOLE [Concomitant]
     Active Substance: PANTOPRAZOLE
     Indication: PRODUCT USED FOR UNKNOWN INDICATION
  8. CLARITHROMYCIN. [Suspect]
     Active Substance: CLARITHROMYCIN
     Indication: PRODUCT USED FOR UNKNOWN INDICATION
     Route: 048
  9. CHOLBAM [Suspect]
     Active Substance: CHOLIC ACID
     Route: 048
     Dates: start: 20200509, end: 20210713
  10. FERROUS SULFATE. [Concomitant]
     Active Substance: FERROUS SULFATE
     Indication: PRODUCT USED FOR UNKNOWN INDICATION
  11. OMEPRAZOLE. [Concomitant]
     Active Substance: OMEPRAZOLE
     Indication: PRODUCT USED FOR UNKNOWN INDICATION
  12. AMOXICILLIN. [Concomitant]
     Active Substance: AMOXICILLIN
     Indication: PRODUCT USED FOR UNKNOWN INDICATION
  13. CHOLBAM [Suspect]
     Active Substance: CHOLIC ACID
     Indication: PRODUCT USED FOR UNKNOWN INDICATION
     Route: 048
     Dates: start: 20150310
  14. CHOLBAM [Suspect]
     Active Substance: CHOLIC ACID
     Route: 048
     Dates: start: 20210721
  15. LIDOCAINE. [Concomitant]
     Active Substance: LIDOCAINE
     Indication: PRODUCT USED FOR UNKNOWN INDICATION
  16. FLOVENT [Concomitant]
     Active Substance: FLUTICASONE PROPIONATE
     Indication: PRODUCT USED FOR UNKNOWN INDICATION

REACTIONS (32)
  - Bronchitis [Recovered/Resolved]
  - Post procedural haemorrhage [Unknown]
  - Breath sounds abnormal [Unknown]
  - Haematochezia [Unknown]
  - Cholangitis [Unknown]
  - Coagulopathy [Unknown]
  - Haematemesis [Recovered/Resolved]
  - Jaundice [Recovering/Resolving]
  - Atelectasis [Unknown]
  - Toxicity to various agents [Unknown]
  - Acute on chronic liver failure [Recovered/Resolved]
  - Pneumonia [Unknown]
  - Vitamin E deficiency [Not Recovered/Not Resolved]
  - Haematoma [Unknown]
  - Epistaxis [Recovered/Resolved]
  - Vitamin K deficiency [Not Recovered/Not Resolved]
  - Vitamin D deficiency [Not Recovered/Not Resolved]
  - Hepatic fibrosis [Unknown]
  - Deficiency of bile secretion [Unknown]
  - Infection [Unknown]
  - Cholestasis [Recovered/Resolved]
  - Vitamin A deficiency [Not Recovered/Not Resolved]
  - Platelet count decreased [Not Recovered/Not Resolved]
  - Tachypnoea [Unknown]
  - Ocular icterus [Unknown]
  - Oedema [Unknown]
  - Biliary dilatation [Unknown]
  - Cholelithiasis [Unknown]
  - Prothrombin time prolonged [Not Recovered/Not Resolved]
  - Haemorrhage [Unknown]
  - Drug-induced liver injury [Unknown]
  - Hypoxia [Unknown]

NARRATIVE: CASE EVENT DATE: 20180607
